FAERS Safety Report 4855870-X (Version None)
Quarter: 2005Q4

REPORT INFORMATION
  Report Type: 
  Country: None (occurrence: None)
  Receive Date: 20051216
  Receipt Date: 20051206
  Transmission Date: 20060501
  Serious: Yes (Hospitalization)
  Sender: FDA-Public Use
  Company Number: 2005CG02032

PATIENT
  Sex: Female

DRUGS (7)
  1. HYTACAND [Suspect]
     Route: 048
  2. DIGOXIN [Suspect]
     Route: 048
     Dates: end: 20050901
  3. DIGOXIN [Suspect]
     Route: 048
     Dates: start: 20050901
  4. DEBRIDAT [Suspect]
     Route: 048
  5. VASTAREL [Suspect]
     Route: 048
     Dates: end: 20050901
  6. VASTAREL [Suspect]
     Route: 048
     Dates: start: 20050901
  7. PLAVIX [Suspect]
     Route: 048

REACTIONS (4)
  - DERMATITIS BULLOUS [None]
  - LEUKOPENIA [None]
  - PYREXIA [None]
  - TOXIC EPIDERMAL NECROLYSIS [None]
